FAERS Safety Report 17814870 (Version 1)
Quarter: 2020Q2

REPORT INFORMATION
  Report Type: Spontaneous
  Country: US (occurrence: US)
  Receive Date: 20200522
  Receipt Date: 20200522
  Transmission Date: 20200714
  Serious: Yes (Other)
  Sender: FDA-Public Use
  Company Number: US-TEVA-2020-US-1237610

PATIENT
  Sex: Male

DRUGS (1)
  1. QUETIAPINE TEVA [Suspect]
     Active Substance: QUETIAPINE
     Route: 065

REACTIONS (3)
  - Chest discomfort [Unknown]
  - Gluten sensitivity [Unknown]
  - Myocardial infarction [Unknown]
